FAERS Safety Report 12591683 (Version 1)
Quarter: 2016Q3

REPORT INFORMATION
  Report Type: Spontaneous
  Country: US (occurrence: US)
  Receive Date: 20160726
  Receipt Date: 20160726
  Transmission Date: 20161109
  Serious: No
  Sender: FDA-Public Use
  Company Number: US-UNITED THERAPEUTICS-UNT-2016-001727

PATIENT
  Sex: Female
  Weight: 52.61 kg

DRUGS (2)
  1. ORENITRAM [Suspect]
     Active Substance: TREPROSTINIL
     Indication: PULMONARY HYPERTENSION
     Dosage: 0.125 MG, BID
     Route: 048
     Dates: start: 20160125
  2. ORENITRAM [Suspect]
     Active Substance: TREPROSTINIL
     Dosage: 0.75 MG, BID
     Route: 048

REACTIONS (22)
  - Gastrointestinal disorder [Unknown]
  - Feeling cold [Unknown]
  - Flushing [Unknown]
  - Pain in extremity [Unknown]
  - Eye pain [Unknown]
  - Vasodilatation [Unknown]
  - Arthralgia [Unknown]
  - Abdominal distension [Unknown]
  - Nasal congestion [Unknown]
  - Nausea [Unknown]
  - Pain [Unknown]
  - Musculoskeletal stiffness [Unknown]
  - Chest discomfort [Unknown]
  - Pulmonary pain [Unknown]
  - Peripheral coldness [Unknown]
  - Constipation [Unknown]
  - Myalgia [Unknown]
  - Chills [Unknown]
  - Platelet count decreased [Unknown]
  - Influenza like illness [Unknown]
  - Flatulence [Unknown]
  - Abdominal discomfort [Unknown]

NARRATIVE: CASE EVENT DATE: 2015
